FAERS Safety Report 4382950-8 (Version None)
Quarter: 2004Q2

REPORT INFORMATION
  Report Type: 
  Country: None (occurrence: None)
  Receive Date: 20040603
  Receipt Date: 20040109
  Transmission Date: 20050107
  Serious: Yes (Other)
  Sender: FDA-Public Use
  Company Number: 200410208US

PATIENT
  Age: 78 Year
  Sex: Female

DRUGS (2)
  1. LOVENOX [Suspect]
     Dosage: 70 MG BID SC
     Route: 058
  2. WARFARIN SODIUM [Concomitant]

REACTIONS (4)
  - ABDOMINAL PAIN LOWER [None]
  - BLOOD PRESSURE DECREASED [None]
  - HAEMATOCRIT DECREASED [None]
  - INTRA-ABDOMINAL HAEMORRHAGE [None]
